FAERS Safety Report 20108055 (Version 1)
Quarter: 2021Q4

REPORT INFORMATION
  Report Type: Spontaneous
  Country: US (occurrence: US)
  Receive Date: 20211124
  Receipt Date: 20211124
  Transmission Date: 20220303
  Serious: No
  Sender: FDA-Public Use
  Company Number: US-KERYX BIOPHARMACEUTICALS INC.-2020US007348

PATIENT
  Sex: Female
  Weight: 52.5 kg

DRUGS (2)
  1. AURYXIA [Suspect]
     Active Substance: TETRAFERRIC TRICITRATE DECAHYDRATE
     Indication: Hyperphosphataemia
     Dosage: 1 GRAM (TABLET), TID WITH MEALS
     Route: 048
     Dates: start: 20180516, end: 20190116
  2. IRON [Suspect]
     Active Substance: IRON
     Dosage: UNK
     Route: 042
     Dates: end: 20190116

REACTIONS (1)
  - Transferrin saturation increased [Recovered/Resolved]

NARRATIVE: CASE EVENT DATE: 20190116
